FAERS Safety Report 8364208-5 (Version None)
Quarter: 2012Q2

REPORT INFORMATION
  Report Type: 
  Country: None (occurrence: None)
  Receive Date: 20120516
  Receipt Date: 20120510
  Transmission Date: 20120825
  Serious: Yes (Other)
  Sender: FDA-Public Use
  Company Number: US-PFIZER INC-2012089265

PATIENT
  Sex: Female
  Weight: 65.76 kg

DRUGS (2)
  1. EFFEXOR XR [Suspect]
     Indication: STRESS
     Dosage: 75 MG, DAILY
     Route: 048
     Dates: start: 20060101
  2. EFFEXOR XR [Suspect]
     Dosage: 150 MG, DAILY
     Route: 048
     Dates: start: 20100101

REACTIONS (3)
  - METASTASES TO LYMPH NODES [None]
  - BREAST CANCER METASTATIC [None]
  - BREAST CANCER FEMALE [None]
